FAERS Safety Report 4477853-4 (Version None)
Quarter: 2004Q4

REPORT INFORMATION
  Report Type: 
  Country: None (occurrence: None)
  Receive Date: 20041014
  Receipt Date: 20040928
  Transmission Date: 20050328
  Serious: Yes (Hospitalization)
  Sender: FDA-Public Use
  Company Number: SP00335

PATIENT
  Age: 54 Year
  Sex: Male
  Weight: 63.5036 kg

DRUGS (8)
  1. COLAZAL [Suspect]
     Dosage: 7 50 MG/TID, ORAL
     Route: 048
     Dates: start: 20040701, end: 20040817
  2. MICARDIS [Concomitant]
  3. PREVACID [Concomitant]
  4. LASIX [Concomitant]
  5. CALCIUM [Concomitant]
  6. ASPIRIN [Concomitant]
  7. LACTULOSE [Concomitant]
  8. ALLEGRA [Concomitant]

REACTIONS (8)
  - AMMONIA INCREASED [None]
  - BLOOD BLISTER [None]
  - CONDITION AGGRAVATED [None]
  - EPISTAXIS [None]
  - PLATELET DESTRUCTION INCREASED [None]
  - THERAPY NON-RESPONDER [None]
  - THROMBOCYTOPENIA [None]
  - WEIGHT DECREASED [None]
